FAERS Safety Report 23338276 (Version 1)
Quarter: 2023Q4

REPORT INFORMATION
  Report Type: Spontaneous
  Country: US (occurrence: None)
  Receive Date: 20231224
  Receipt Date: 20231224
  Transmission Date: 20240110
  Serious: Yes (Other)
  Sender: FDA-Public Use
  Company Number: None

PATIENT
  Age: 33 Year
  Sex: Male
  Weight: 63 kg

DRUGS (13)
  1. PAXLOVID [Suspect]
     Active Substance: NIRMATRELVIR\RITONAVIR
     Indication: COVID-19
     Dosage: OTHER QUANTITY : 3 TABLET(S);?FREQUENCY : TWICE A DAY;?
     Route: 048
     Dates: start: 20231215, end: 20231220
  2. MINOXIDIL [Concomitant]
     Active Substance: MINOXIDIL
  3. FINASTERIDE [Concomitant]
     Active Substance: FINASTERIDE
  4. ESCITALOPRAM [Concomitant]
     Active Substance: ESCITALOPRAM OXALATE
  5. ALBUTEROL SULFATE [Concomitant]
  6. FLUTICASONE [Concomitant]
     Active Substance: FLUTICASONE
  7. DEVICE [Concomitant]
     Active Substance: DEVICE
  8. VITAMIN D3 [Concomitant]
     Active Substance: CHOLECALCIFEROL
  9. vitamin B12 (methylcobalamin) [Concomitant]
  10. FISH OIL [Concomitant]
     Active Substance: FISH OIL
  11. PSYLLIUM WHOLE HUSKS [Concomitant]
  12. MELATONIN [Concomitant]
     Active Substance: MELATONIN
  13. menthol lozenges [Concomitant]

REACTIONS (2)
  - COVID-19 [None]
  - SARS-CoV-2 test positive [None]

NARRATIVE: CASE EVENT DATE: 20231223
